FAERS Safety Report 14164487 (Version 1)
Quarter: 2017Q4

REPORT INFORMATION
  Report Type: Spontaneous
  Country: US (occurrence: US)
  Receive Date: 20171107
  Receipt Date: 20171107
  Transmission Date: 20180321
  Serious: No
  Sender: FDA-Public Use
  Company Number: US-LUPIN PHARMACEUTICALS INC.-2017-03327

PATIENT
  Sex: Male

DRUGS (1)
  1. LISINOPRIL TABLETS USP, 5MG [Suspect]
     Active Substance: LISINOPRIL
     Indication: HYPERTENSION
     Dosage: 7.5 MG, QD
     Route: 048
     Dates: start: 20170607

REACTIONS (2)
  - Heart rate increased [Not Recovered/Not Resolved]
  - Product colour issue [Unknown]

NARRATIVE: CASE EVENT DATE: 201706
